FAERS Safety Report 9334602 (Version 2)
Quarter: 2013Q3

REPORT INFORMATION
  Report Type: Spontaneous
  Country: IT (occurrence: IT)
  Receive Date: 20130606
  Receipt Date: 20130805
  Transmission Date: 20140515
  Serious: Yes (Hospitalization)
  Sender: FDA-Public Use
  Company Number: PHHY2013IT056066

PATIENT
  Sex: Male

DRUGS (9)
  1. TICLOPIDINE [Suspect]
     Indication: PROPHYLAXIS
     Route: 048
     Dates: start: 20100101, end: 20130409
  2. COUMADINE [Interacting]
     Indication: PROPHYLAXIS
     Dosage: 5 MG, PRN
     Route: 048
     Dates: start: 20100101, end: 20130409
  3. EUTIROX [Concomitant]
     Dosage: 25 UG, UNK
  4. LASIX [Concomitant]
     Dosage: 25 MG, UNK
  5. ALDACTONE [Concomitant]
     Dosage: 25 MG, UNK
  6. DOSTINEX [Concomitant]
     Dosage: 0.5 MG, UNK
  7. DIBASE [Concomitant]
  8. LANSOPRAZOLE [Concomitant]
  9. ALLOPURINOL [Concomitant]

REACTIONS (3)
  - Subdural haematoma [Recovering/Resolving]
  - Psychomotor skills impaired [Recovering/Resolving]
  - Drug interaction [Recovering/Resolving]
